FAERS Safety Report 8606424-0 (Version None)
Quarter: 2012Q3

REPORT INFORMATION
  Report Type: 
  Country: None (occurrence: None)
  Receive Date: 20120820
  Receipt Date: 20120810
  Transmission Date: 20120928
  Serious: Yes (Hospitalization)
  Sender: FDA-Public Use
  Company Number: GB-ASTRAZENECA-2012SE57133

PATIENT
  Age: 0 Week
  Sex: Male
  Weight: 2.2 kg

DRUGS (9)
  1. DIHYDROCODEINE BITARTRATE INJ [Suspect]
     Indication: PAIN
     Route: 064
     Dates: start: 20100315
  2. PROPRANOLOL [Suspect]
     Indication: PALPITATIONS
     Route: 064
     Dates: start: 20090505
  3. SEROQUEL XR [Suspect]
     Indication: ANXIETY
     Route: 064
     Dates: start: 20110323, end: 20110910
  4. CHLORPROMAZINE HCL [Suspect]
     Indication: ANXIETY
     Route: 064
     Dates: start: 20110922
  5. SEROQUEL XR [Suspect]
     Indication: DEPRESSION
     Route: 064
     Dates: start: 20110323, end: 20110910
  6. OMEPRAZOLE [Suspect]
     Indication: DYSPEPSIA
     Route: 064
     Dates: start: 20080919
  7. PROPRANOLOL [Suspect]
     Indication: ANXIETY
     Route: 064
     Dates: start: 20090505
  8. CITALOPRAM HYDROBROMIDE [Suspect]
     Indication: DEPRESSION
     Route: 064
     Dates: start: 20111004
  9. FLUOXETINE HCL [Suspect]
     Indication: DEPRESSION
     Route: 064
     Dates: start: 20100621, end: 20111004

REACTIONS (5)
  - HYPOCALCAEMIA [None]
  - DRUG WITHDRAWAL SYNDROME NEONATAL [None]
  - NEONATAL RESPIRATORY DISTRESS SYNDROME [None]
  - PNEUMOTHORAX [None]
  - PREMATURE BABY [None]
